FAERS Safety Report 5663100-4 (Version None)
Quarter: 2008Q1

REPORT INFORMATION
  Report Type: 
  Country: None (occurrence: None)
  Receive Date: 20080313
  Receipt Date: 20080306
  Transmission Date: 20080703
  Serious: Yes (Congenital Anomaly)
  Sender: FDA-Public Use
  Company Number: A0713816A

PATIENT

DRUGS (4)
  1. ARIXTRA [Suspect]
     Dates: start: 20071101
  2. ASPIRIN [Concomitant]
  3. VITAMIN AND MINERAL PRENATAL SUPPLEMENT W/ FOLIC ACID CAP [Concomitant]
  4. LOVENOX [Concomitant]

REACTIONS (2)
  - CLEFT LIP [None]
  - DRUG EXPOSURE DURING PREGNANCY [None]
